FAERS Safety Report 5122490-1 (Version None)
Quarter: 2006Q4

REPORT INFORMATION
  Report Type: 
  Country: None (occurrence: None)
  Receive Date: 20061004
  Receipt Date: 20060919
  Transmission Date: 20070319
  Serious: Yes (Other)
  Sender: FDA-Public Use
  Company Number: 200609IM000540

PATIENT
  Sex: Female

DRUGS (5)
  1. ACTIMMUNE [Suspect]
     Indication: HEPATITIS C VIRUS
     Dosage: 100 UG, TIW, SUBCUTANEOUS
     Route: 058
  2. INTERFERON ALFACON-1 [Concomitant]
  3. RIBAVIRIN [Concomitant]
  4. RECOMBINANT G-CSF [Concomitant]
  5. RECOMBINANT ERYTHROPOIETIN [Concomitant]

REACTIONS (2)
  - PNEUMONIA [None]
  - THERAPEUTIC RESPONSE DECREASED [None]
